FAERS Safety Report 13963980 (Version 5)
Quarter: 2019Q4

REPORT INFORMATION
  Report Type: Report from Study
  Country: None (occurrence: JP)
  Receive Date: 20170913
  Receipt Date: 20191217
  Transmission Date: 20200122
  Serious: Yes (Hospitalization)
  Sender: FDA-Public Use
  Company Number: JP-ABBVIE-17K-087-1995756-00

PATIENT
  Age: 75 Year
  Sex: Female
  Weight: 46 kg

DRUGS (3)
  1. ZONISAMIDE. [Concomitant]
     Active Substance: ZONISAMIDE
     Indication: TREMOR
  2. DUODOPA [Suspect]
     Active Substance: CARBIDOPA\LEVODOPA
     Indication: PARKINSON^S DISEASE
     Dosage: MD: 5 ML?CD: 1.2 ML/HR ? 16 HRS?ED: 0.5 ML/UNIT ? 1
     Route: 050
     Dates: start: 20170126
  3. ZONISAMIDE. [Concomitant]
     Active Substance: ZONISAMIDE
     Indication: PARKINSON^S DISEASE
     Route: 048

REACTIONS (5)
  - Wrong technique in device usage process [Unknown]
  - Stoma site haemorrhage [Unknown]
  - Stoma site rash [Unknown]
  - Stoma site irritation [Unknown]
  - Loss of personal independence in daily activities [Unknown]

NARRATIVE: CASE EVENT DATE: 2017
